FAERS Safety Report 10285948 (Version 2)
Quarter: 2014Q3

REPORT INFORMATION
  Report Type: Report from Study
  Country: MX (occurrence: MX)
  Receive Date: 20140709
  Receipt Date: 20140709
  Transmission Date: 20150326
  Serious: Yes (Other)
  Sender: FDA-Public Use
  Company Number: PHHY2013MX121671

PATIENT
  Age: 45 Year
  Sex: Male

DRUGS (3)
  1. GLIVEC [Suspect]
     Active Substance: IMATINIB MESYLATE
     Indication: GASTROINTESTINAL STROMAL TUMOUR
     Dosage: 800 MG
     Route: 048
     Dates: start: 200902, end: 2010
  2. GLIVEC [Suspect]
     Active Substance: IMATINIB MESYLATE
     Dosage: UNK UKN, UNK
     Dates: start: 201201
  3. GLIVEC [Suspect]
     Active Substance: IMATINIB MESYLATE
     Dosage: 400 MG, BID
     Route: 048
     Dates: start: 20120105, end: 20130919

REACTIONS (6)
  - Metastases to liver [Unknown]
  - Malignant neoplasm progression [Unknown]
  - Hepatic lesion [Unknown]
  - Protein-losing gastroenteropathy [Unknown]
  - Liver injury [Unknown]
  - Gastrointestinal stromal tumour [Unknown]

NARRATIVE: CASE EVENT DATE: 201110
